FAERS Safety Report 9840096 (Version 1)
Quarter: 2014Q1

REPORT INFORMATION
  Report Type: Spontaneous
  Country: US (occurrence: None)
  Receive Date: 20140121
  Receipt Date: 20140121
  Transmission Date: 20141002
  Serious: No
  Sender: FDA-Public Use
  Company Number: None

PATIENT
  Age: 43 Year
  Sex: Male

DRUGS (6)
  1. PANTOPRAZOLE [Suspect]
     Indication: GASTROOESOPHAGEAL REFLUX DISEASE
     Route: 048
     Dates: start: 20131209, end: 20140102
  2. PREVACID [Concomitant]
  3. ZYRTEC [Concomitant]
  4. FLOVENT [Concomitant]
  5. PROAIR [Concomitant]
  6. ULTRAM [Concomitant]

REACTIONS (1)
  - Depression suicidal [None]
